FAERS Safety Report 6424671-3 (Version None)
Quarter: 2009Q4

REPORT INFORMATION
  Report Type: 
  Country: None (occurrence: None)
  Receive Date: 20091102
  Receipt Date: 20091102
  Transmission Date: 20100525
  Serious: Yes (Hospitalization)
  Sender: FDA-Public Use
  Company Number: None

PATIENT
  Age: 70 Year
  Sex: Male

DRUGS (2)
  1. IRINOTECAN HCL [Suspect]
     Indication: CHEMOTHERAPY
     Dosage: 240 MG IV
     Route: 042
     Dates: start: 20090326
  2. IRINOTECAN HCL [Suspect]
     Indication: LUNG NEOPLASM MALIGNANT
     Dosage: 240 MG IV
     Route: 042
     Dates: start: 20090326

REACTIONS (3)
  - DEHYDRATION [None]
  - DIARRHOEA [None]
  - HYPOTENSION [None]
